FAERS Safety Report 22523204 (Version 4)
Quarter: 2023Q2

REPORT INFORMATION
  Report Type: Spontaneous
  Country: US (occurrence: US)
  Receive Date: 20230606
  Receipt Date: 20230623
  Transmission Date: 20230722
  Serious: No
  Sender: FDA-Public Use
  Company Number: US-002147023-NVSC2023US126435

PATIENT
  Sex: Female

DRUGS (1)
  1. XIIDRA [Suspect]
     Active Substance: LIFITEGRAST
     Indication: Product used for unknown indication
     Dosage: 5 %, BID (1 DROP IN EACH EYE)
     Route: 047

REACTIONS (4)
  - Visual impairment [Unknown]
  - Eye irritation [Unknown]
  - Dysgeusia [Unknown]
  - Eye pain [Unknown]
